FAERS Safety Report 5092191-7 (Version None)
Quarter: 2006Q3

REPORT INFORMATION
  Report Type: 
  Country: None (occurrence: None)
  Receive Date: 20060824
  Receipt Date: 20060814
  Transmission Date: 20061208
  Serious: Yes (Hospitalization)
  Sender: FDA-Public Use
  Company Number: 2006098334

PATIENT
  Sex: Female

DRUGS (1)
  1. LISTERINE (MENTHOL, METHYL SALICYLATE, EUCALYPTOL, THYMOL) [Suspect]
     Dosage: ^CASES^ (FREQUENCY UNSPECIFIED), ORAL
     Route: 048

REACTIONS (2)
  - INTENTIONAL DRUG MISUSE [None]
  - PHARYNGEAL ULCERATION [None]
